FAERS Safety Report 7246458-4 (Version None)
Quarter: 2011Q1

REPORT INFORMATION
  Report Type: 
  Country: None (occurrence: None)
  Receive Date: 20110126
  Receipt Date: 20101101
  Transmission Date: 20110831
  Serious: No
  Sender: FDA-Public Use
  Company Number: US-MYLANLABS-2010S1020212

PATIENT
  Age: 71 Year
  Sex: Male

DRUGS (3)
  1. TAMSULOSIN HCL [Suspect]
     Route: 048
     Dates: start: 20100801, end: 20101001
  2. PIROXICAM [Concomitant]
  3. GLEEVEC [Concomitant]
     Indication: NEOPLASM MALIGNANT

REACTIONS (2)
  - FLUSHING [None]
  - FLATULENCE [None]
